FAERS Safety Report 12890402 (Version 1)
Quarter: 2016Q4

REPORT INFORMATION
  Report Type: Report from Study
  Country: CZ (occurrence: CZ)
  Receive Date: 20161027
  Receipt Date: 20161027
  Transmission Date: 20170207
  Serious: Yes (Hospitalization, Other)
  Sender: FDA-Public Use
  Company Number: PHHY2016CZ142556

PATIENT
  Age: 63 Year
  Sex: Male

DRUGS (2)
  1. ALGIFEN [Concomitant]
     Indication: PAIN
     Route: 065
  2. SANDOSTATIN LAR DEPOT [Suspect]
     Active Substance: OCTREOTIDE ACETATE
     Indication: NEUROENDOCRINE TUMOUR
     Dosage: 30 OT, QMO (ONCE PER 28 DAYS)
     Route: 065
     Dates: start: 20140130, end: 20160509

REACTIONS (3)
  - Malignant neoplasm progression [Recovering/Resolving]
  - Drug ineffective [Unknown]
  - Ileus [Unknown]

NARRATIVE: CASE EVENT DATE: 20160509
